FAERS Safety Report 25441528 (Version 2)
Quarter: 2025Q2

REPORT INFORMATION
  Report Type: Spontaneous
  Country: PK (occurrence: PK)
  Receive Date: 20250616
  Receipt Date: 20250624
  Transmission Date: 20250717
  Serious: Yes (Death, Life-Threatening, Other)
  Sender: PFIZER
  Company Number: PK-PFIZER INC-PV202500071166

PATIENT
  Age: 32 Year
  Sex: Male

DRUGS (2)
  1. MEROPENEM [Suspect]
     Active Substance: MEROPENEM
     Indication: Escherichia infection
  2. MEROPENEM [Suspect]
     Active Substance: MEROPENEM
     Indication: Antibiotic therapy

REACTIONS (5)
  - Septic shock [Fatal]
  - Acute respiratory distress syndrome [Fatal]
  - Candida infection [Fatal]
  - Pseudomonal sepsis [Fatal]
  - Drug resistance [Unknown]
